FAERS Safety Report 7065688-8 (Version None)
Quarter: 2010Q4

REPORT INFORMATION
  Report Type: 
  Country: None (occurrence: None)
  Receive Date: 20101027
  Receipt Date: 20101021
  Transmission Date: 20110411
  Serious: Yes (Other)
  Sender: FDA-Public Use
  Company Number: US-JNJCH-2010024162

PATIENT
  Age: 39 Year
  Sex: Female
  Weight: 81.6 kg

DRUGS (2)
  1. LISTERINE WHITENING QUICK DISSOLVING STRIPS [Suspect]
     Indication: DENTAL CARE
     Dosage: TEXT:TWO STRIPS TWICE DAILY
     Route: 048
     Dates: start: 20101017, end: 20101020
  2. PRENATAL VITAMINS [Concomitant]
     Indication: VITAMIN SUPPLEMENTATION
     Dosage: TEXT:ONE / DAY
     Route: 065

REACTIONS (6)
  - BURNING SENSATION [None]
  - LIP DISCOLOURATION [None]
  - LIP PAIN [None]
  - LIP SWELLING [None]
  - SLEEP DISORDER [None]
  - THERMAL BURN [None]
